FAERS Safety Report 18479768 (Version 1)
Quarter: 2020Q4

REPORT INFORMATION
  Report Type: Spontaneous
  Country: IT (occurrence: IT)
  Receive Date: 20201109
  Receipt Date: 20201109
  Transmission Date: 20210114
  Serious: Yes (Hospitalization, Other)
  Sender: FDA-Public Use
  Company Number: IT-MYLANLABS-2020M1050528

PATIENT
  Age: 70 Year
  Sex: Male

DRUGS (1)
  1. ADALIMUMAB [Suspect]
     Active Substance: ADALIMUMAB
     Indication: ERYTHRODERMIC PSORIASIS
     Dosage: 40 MILLIGRAM, Q2W
     Route: 065

REACTIONS (3)
  - Intervertebral discitis [Recovered/Resolved]
  - Staphylococcal bacteraemia [Recovered/Resolved]
  - Back pain [Recovered/Resolved]
